FAERS Safety Report 21626804 (Version 1)
Quarter: 2022Q4

REPORT INFORMATION
  Report Type: Spontaneous
  Country: US (occurrence: US)
  Receive Date: 20221122
  Receipt Date: 20221122
  Transmission Date: 20230113
  Serious: No
  Sender: FDA-Public Use
  Company Number: US-AUROBINDO-AUR-APL-2022-016716

PATIENT
  Age: 52 Year
  Sex: Female
  Weight: 81.64 kg

DRUGS (3)
  1. GABAPENTIN [Suspect]
     Active Substance: GABAPENTIN
     Indication: Anxiety
     Dosage: 600 MILLIGRAM, FOUR TIMES/DAY
     Route: 048
     Dates: start: 20220427
  2. GABAPENTIN [Suspect]
     Active Substance: GABAPENTIN
     Indication: Neuropathy peripheral
  3. GABAPENTIN [Suspect]
     Active Substance: GABAPENTIN
     Indication: Fibromyalgia

REACTIONS (4)
  - Feeling abnormal [Unknown]
  - Logorrhoea [Unknown]
  - Weight decreased [Unknown]
  - Drug effect faster than expected [Unknown]
